FAERS Safety Report 12149037 (Version 7)
Quarter: 2016Q4

REPORT INFORMATION
  Report Type: Spontaneous
  Country: JP (occurrence: JP)
  Receive Date: 20160304
  Receipt Date: 20161223
  Transmission Date: 20170207
  Serious: Yes (Death, Hospitalization, Disabling, Other)
  Sender: FDA-Public Use
  Company Number: PHJP2016JP004217

PATIENT
  Age: 52 Year
  Sex: Female

DRUGS (6)
  1. FENTOS [Concomitant]
     Active Substance: FENTANYL
     Indication: PRODUCT USED FOR UNKNOWN INDICATION
     Route: 065
  2. HALAVEN [Concomitant]
     Active Substance: ERIBULIN MESYLATE
     Indication: METASTASES TO LIVER
     Route: 065
     Dates: start: 201410
  3. AROMASIN [Concomitant]
     Active Substance: EXEMESTANE
     Indication: BREAST CANCER
     Dosage: 25 MG, QD
     Route: 048
  4. ABRAXANE [Concomitant]
     Active Substance: PACLITAXEL
     Indication: METASTASES TO LIVER
     Route: 065
  5. AFINITOR [Suspect]
     Active Substance: EVEROLIMUS
     Indication: BREAST CANCER METASTATIC
     Dosage: 10 MG, QD
     Route: 048
     Dates: start: 201510, end: 201512
  6. AVASTIN [Concomitant]
     Active Substance: BEVACIZUMAB
     Indication: METASTASES TO LIVER
     Route: 065
     Dates: start: 201502

REACTIONS (13)
  - Pain [Unknown]
  - Portal vein stenosis [Fatal]
  - Malaise [Unknown]
  - Bile duct stenosis [Fatal]
  - Hepatic failure [Fatal]
  - Jaundice [Fatal]
  - Malignant neoplasm progression [Fatal]
  - Jaundice cholestatic [Unknown]
  - Biliary dilatation [Unknown]
  - Hepatic atrophy [Fatal]
  - Liver disorder [Not Recovered/Not Resolved]
  - General physical condition abnormal [Unknown]
  - Hepatic lesion [Unknown]

NARRATIVE: CASE EVENT DATE: 20160205
